FAERS Safety Report 8208684-7 (Version None)
Quarter: 2012Q1

REPORT INFORMATION
  Report Type: 
  Country: None (occurrence: None)
  Receive Date: 20120314
  Receipt Date: 20120307
  Transmission Date: 20120608
  Serious: Yes (Other)
  Sender: FDA-Public Use
  Company Number: US-BAYER-201031416NA

PATIENT
  Age: 16 Year
  Sex: Female
  Weight: 60 kg

DRUGS (5)
  1. NAPROXEN [Concomitant]
     Indication: DYSMENORRHOEA
  2. YAZ [Suspect]
     Indication: MUSCLE SPASMS
     Dosage: UNK
     Route: 048
     Dates: start: 20081201, end: 20090201
  3. YAZ [Suspect]
     Indication: DYSMENORRHOEA
  4. LUPRON [Concomitant]
  5. YAZ [Suspect]
     Indication: MENORRHAGIA

REACTIONS (2)
  - PULMONARY EMBOLISM [None]
  - TACHYCARDIA [None]
